FAERS Safety Report 14957336 (Version 1)
Quarter: 2018Q2

REPORT INFORMATION
  Report Type: Spontaneous
  Country: FR (occurrence: FR)
  Receive Date: 20180531
  Receipt Date: 20180531
  Transmission Date: 20180711
  Serious: Yes (Other)
  Sender: FDA-Public Use
  Company Number: FR-PFIZER INC-2018216120

PATIENT
  Age: 57 Year
  Sex: Male
  Weight: 96 kg

DRUGS (3)
  1. KARDEGIC [Suspect]
     Active Substance: ASPIRIN DL-LYSINE
     Indication: CEREBROVASCULAR ACCIDENT PROPHYLAXIS
     Dosage: 160 MG, 1X/DAY
     Route: 048
     Dates: start: 20180329
  2. TAHOR [Suspect]
     Active Substance: ATORVASTATIN CALCIUM
     Indication: MYOCARDIAL ISCHAEMIA
     Dosage: 10 MG, 1X/DAY
     Route: 048
     Dates: start: 20180329, end: 20180404
  3. VISIPAQUE [Concomitant]
     Active Substance: IODIXANOL

REACTIONS (2)
  - Pruritus [Recovered/Resolved]
  - Urticaria [Recovered/Resolved]

NARRATIVE: CASE EVENT DATE: 20180404
